FAERS Safety Report 7455880-2 (Version None)
Quarter: 2011Q2

REPORT INFORMATION
  Report Type: 
  Country: None (occurrence: None)
  Receive Date: 20110503
  Receipt Date: 20110427
  Transmission Date: 20111010
  Serious: Yes (Hospitalization)
  Sender: FDA-Public Use
  Company Number: A0925192A

PATIENT
  Age: 57 Year
  Sex: Female
  Weight: 103.2 kg

DRUGS (8)
  1. AVANDIA [Suspect]
     Indication: DIABETES MELLITUS
     Dosage: 4MG PER DAY
     Route: 048
     Dates: start: 20061130, end: 20061229
  2. TRAMADOL [Concomitant]
  3. METFORMIN HYDROCHLORIDE [Concomitant]
  4. PREVACID [Concomitant]
  5. TOPAMAX [Concomitant]
  6. FOLIC ACID [Concomitant]
  7. HYZAAR [Concomitant]
  8. LASIX [Concomitant]

REACTIONS (2)
  - HYPERTENSION [None]
  - CARDIAC FAILURE CONGESTIVE [None]
